FAERS Safety Report 11683286 (Version 1)
Quarter: 2015Q4

REPORT INFORMATION
  Report Type: Spontaneous
  Country: US (occurrence: US)
  Receive Date: 20151029
  Receipt Date: 20151029
  Transmission Date: 20160304
  Serious: Yes (Other)
  Sender: FDA-Public Use
  Company Number: US-FRESENIUS KABI-FK201505445

PATIENT
  Age: 14 Year
  Sex: Female

DRUGS (10)
  1. ATIVAN [Concomitant]
     Active Substance: LORAZEPAM
     Indication: AGITATION
     Route: 048
  2. METHADONE [Concomitant]
     Active Substance: METHADONE HYDROCHLORIDE
  3. PANTOPRAZOLE [Concomitant]
     Active Substance: PANTOPRAZOLE SODIUM
  4. ZOLOFT [Concomitant]
     Active Substance: SERTRALINE HYDROCHLORIDE
  5. IRON [Concomitant]
     Active Substance: IRON
     Indication: ANAEMIA
  6. METHADONE [Concomitant]
     Active Substance: METHADONE HYDROCHLORIDE
  7. VINBLASTINE SULFATE INJECTION [Suspect]
     Active Substance: VINBLASTINE SULFATE
     Indication: ADENOMATOUS POLYPOSIS COLI
     Route: 042
     Dates: start: 201412
  8. AMITRIPTYLINE [Concomitant]
     Active Substance: AMITRIPTYLINE
  9. METHADONE [Concomitant]
     Active Substance: METHADONE HYDROCHLORIDE
  10. NEURONTIN [Concomitant]
     Active Substance: GABAPENTIN

REACTIONS (2)
  - Tinnitus [Not Recovered/Not Resolved]
  - VIIIth nerve injury [None]
